FAERS Safety Report 23225522 (Version 1)
Quarter: 2023Q4

REPORT INFORMATION
  Report Type: Spontaneous
  Country: US (occurrence: US)
  Receive Date: 20231124
  Receipt Date: 20231124
  Transmission Date: 20240110
  Serious: Yes (Death, Life-Threatening, Hospitalization, Other)
  Sender: FDA-Public Use
  Company Number: US-MLMSERVICE-20230130-4060287-1

PATIENT

DRUGS (1)
  1. HYDROXYCHLOROQUINE [Suspect]
     Active Substance: HYDROXYCHLOROQUINE
     Dosage: 3 G
     Route: 048

REACTIONS (15)
  - Multiple organ dysfunction syndrome [Fatal]
  - Acute kidney injury [Fatal]
  - Shock [Fatal]
  - Hypophosphataemia [Fatal]
  - Left ventricular dysfunction [Fatal]
  - Lactic acidosis [Fatal]
  - Encephalopathy [Fatal]
  - Depressed level of consciousness [Fatal]
  - Intestinal pseudo-obstruction [Fatal]
  - Bradycardia [Fatal]
  - Electrolyte imbalance [Fatal]
  - Respiratory distress [Fatal]
  - Hypokalaemia [Fatal]
  - Defect conduction intraventricular [Fatal]
  - Intentional overdose [Fatal]
